FAERS Safety Report 7488712-7 (Version None)
Quarter: 2011Q2

REPORT INFORMATION
  Report Type: 
  Country: None (occurrence: None)
  Receive Date: 20110518
  Receipt Date: 20110509
  Transmission Date: 20111010
  Serious: Yes (Other)
  Sender: FDA-Public Use
  Company Number: Z0009383A

PATIENT
  Sex: Female
  Weight: 79.4 kg

DRUGS (2)
  1. LAPATINIB [Suspect]
     Dosage: 1250MG PER DAY
     Route: 048
     Dates: start: 20110303
  2. VINORELBINE [Suspect]
     Dosage: 20MGM2 CYCLIC
     Route: 042
     Dates: start: 20110303

REACTIONS (1)
  - NEUTROPENIA [None]
